FAERS Safety Report 25276503 (Version 1)
Quarter: 2025Q2

REPORT INFORMATION
  Report Type: Spontaneous
  Country: US (occurrence: US)
  Receive Date: 20250507
  Receipt Date: 20250507
  Transmission Date: 20250716
  Serious: Yes (Hospitalization, Other)
  Sender: RANBAXY
  Company Number: US-SUN PHARMACEUTICAL INDUSTRIES LTD-2025R1-506297

PATIENT
  Age: 52 Year
  Sex: Male

DRUGS (1)
  1. BUPRENORPHINE\NALOXONE [Suspect]
     Active Substance: BUPRENORPHINE\NALOXONE
     Indication: Adenocarcinoma
     Route: 065

REACTIONS (4)
  - Overdose [Recovering/Resolving]
  - Compulsive hoarding [Unknown]
  - Drug diversion [Unknown]
  - Drug use disorder [Unknown]
